FAERS Safety Report 5853270-7 (Version None)
Quarter: 2008Q3

REPORT INFORMATION
  Report Type: 
  Country: None (occurrence: None)
  Receive Date: 20080821
  Receipt Date: 20080806
  Transmission Date: 20090109
  Serious: Yes (Other)
  Sender: FDA-Public Use
  Company Number: US-BAXTER-2008BH007836

PATIENT
  Age: 69 Year
  Sex: Male
  Weight: 103 kg

DRUGS (4)
  1. GAMMAGARD LIQUID [Suspect]
     Indication: POLYNEUROPATHY
     Route: 042
     Dates: start: 20080701, end: 20080701
  2. GAMMAGARD LIQUID [Suspect]
     Indication: OFF LABEL USE
     Route: 042
     Dates: start: 20080701, end: 20080701
  3. TYLENOL [Concomitant]
     Indication: PREMEDICATION
     Route: 048
     Dates: start: 20080701, end: 20080701
  4. DIPHENHYDRAMINE HCL [Concomitant]
     Indication: PREMEDICATION
     Route: 048
     Dates: start: 20080701, end: 20080701

REACTIONS (2)
  - DRUG INEFFECTIVE [None]
  - PAIN [None]
